FAERS Safety Report 9165799 (Version 3)
Quarter: 2014Q2

REPORT INFORMATION
  Report Type: Spontaneous
  Country: US (occurrence: US)
  Receive Date: 20130315
  Receipt Date: 20140618
  Transmission Date: 20141212
  Serious: Yes (Hospitalization, Other)
  Sender: FDA-Public Use
  Company Number: US-009507513-2010SP057063

PATIENT
  Sex: Female
  Weight: 81.65 kg

DRUGS (2)
  1. NUVARING [Suspect]
     Indication: CONTRACEPTION
     Dosage: UNK UNK, QM
     Route: 067
     Dates: start: 200707, end: 20081129
  2. IBUPROFEN [Concomitant]
     Indication: ANALGESIC THERAPY
     Dosage: AS NEEDED
     Dates: start: 20081114

REACTIONS (7)
  - Pulmonary alveolar haemorrhage [Recovered/Resolved]
  - Pulmonary embolism [Recovered/Resolved]
  - Pulmonary infarction [Recovered/Resolved]
  - Emotional disorder [Unknown]
  - Mental disorder [Unknown]
  - Headache [Unknown]
  - Upper respiratory tract infection [Unknown]
